FAERS Safety Report 17828706 (Version 1)
Quarter: 2020Q2

REPORT INFORMATION
  Report Type: Spontaneous
  Country: US (occurrence: US)
  Receive Date: 20200527
  Receipt Date: 20200527
  Transmission Date: 20200714
  Serious: No
  Sender: FDA-Public Use
  Company Number: None

PATIENT
  Sex: Female
  Weight: 103.5 kg

DRUGS (3)
  1. DEXAMETHASONE. [Suspect]
     Active Substance: DEXAMETHASONE
     Dates: end: 20170621
  2. LENALIDOMIDE [Suspect]
     Active Substance: LENALIDOMIDE
     Dates: end: 20190312
  3. VELCADE [Suspect]
     Active Substance: BORTEZOMIB
     Dates: end: 20170620

REACTIONS (5)
  - Abdominal pain lower [None]
  - Cellulitis [None]
  - Skin ulcer [None]
  - Drug eruption [None]
  - Fungal infection [None]

NARRATIVE: CASE EVENT DATE: 20190321
